FAERS Safety Report 25356780 (Version 1)
Quarter: 2025Q2

REPORT INFORMATION
  Report Type: Spontaneous
  Country: GB (occurrence: GB)
  Receive Date: 20250526
  Receipt Date: 20250526
  Transmission Date: 20250717
  Serious: Yes (Other)
  Sender: DR REDDYS
  Company Number: GB-UKI-GBR/2025/05/007549

PATIENT
  Age: 69 Year
  Sex: Female

DRUGS (5)
  1. CAPECITABINE [Suspect]
     Active Substance: CAPECITABINE
     Indication: HER2 negative breast cancer
  2. ZOLEDRONIC ACID [Suspect]
     Active Substance: ZOLEDRONIC ACID
     Indication: HER2 negative breast cancer
  3. ANASTROZOLE [Concomitant]
     Active Substance: ANASTROZOLE
     Indication: HER2 negative breast cancer
  4. EXEMESTANE [Concomitant]
     Active Substance: EXEMESTANE
     Indication: HER2 negative breast cancer
  5. EPIRUBICIN [Concomitant]
     Active Substance: EPIRUBICIN
     Indication: HER2 negative breast cancer

REACTIONS (2)
  - Drug ineffective [Unknown]
  - Product use in unapproved indication [Unknown]
